FAERS Safety Report 17688143 (Version 1)
Quarter: 2020Q2

REPORT INFORMATION
  Report Type: Spontaneous
  Country: US (occurrence: US)
  Receive Date: 20200420
  Receipt Date: 20200420
  Transmission Date: 20200714
  Serious: Yes (Death)
  Sender: FDA-Public Use
  Company Number: None

PATIENT
  Age: 91 Year
  Sex: Female
  Weight: 45.3 kg

DRUGS (2)
  1. ACTIVASE [Suspect]
     Active Substance: ALTEPLASE
     Indication: ISCHAEMIC STROKE
     Dosage: ?          OTHER FREQUENCY:ONCE;?
     Dates: start: 20200415, end: 20200415
  2. APIXABAN [Suspect]
     Active Substance: APIXABAN

REACTIONS (3)
  - Haemorrhage intracranial [None]
  - Gingival bleeding [None]
  - Cardiac arrest [None]

NARRATIVE: CASE EVENT DATE: 20200416
